FAERS Safety Report 7788881-5 (Version None)
Quarter: 2011Q3

REPORT INFORMATION
  Report Type: 
  Country: None (occurrence: None)
  Receive Date: 20110930
  Receipt Date: 20110915
  Transmission Date: 20111222
  Serious: Yes (Hospitalization)
  Sender: FDA-Public Use
  Company Number: US-ROCHE-1000451

PATIENT
  Sex: Female
  Weight: 43 kg

DRUGS (2)
  1. TARCEVA [Suspect]
     Indication: LUNG NEOPLASM MALIGNANT
     Route: 048
  2. PEMETREXED DISODIUM [Suspect]
     Indication: LUNG NEOPLASM MALIGNANT
     Route: 042

REACTIONS (4)
  - OEDEMA PERIPHERAL [None]
  - DECREASED APPETITE [None]
  - CELLULITIS [None]
  - DYSPHAGIA [None]
